FAERS Safety Report 6122369-2 (Version None)
Quarter: 2009Q1

REPORT INFORMATION
  Report Type: 
  Country: None (occurrence: None)
  Receive Date: 20090318
  Receipt Date: 20090202
  Transmission Date: 20090719
  Serious: No
  Sender: FDA-Public Use
  Company Number: US-ASTRAZENECA-2009UW02961

PATIENT
  Age: 72 Year
  Sex: Female
  Weight: 65.8 kg

DRUGS (2)
  1. SYMBICORT [Suspect]
     Indication: COUGH
     Dosage: 160 UG 2 PUFFS
     Route: 055
  2. SYMBICORT [Suspect]
     Indication: DYSPNOEA
     Dosage: 160 UG 2 PUFFS
     Route: 055

REACTIONS (2)
  - DYSGEUSIA [None]
  - PAROSMIA [None]
